FAERS Safety Report 6434898-2 (Version None)
Quarter: 2009Q4

REPORT INFORMATION
  Report Type: 
  Country: None (occurrence: None)
  Receive Date: 20091110
  Receipt Date: 20091026
  Transmission Date: 20100525
  Serious: Yes (Other)
  Sender: FDA-Public Use
  Company Number: AU-GENENTECH-293339

PATIENT
  Sex: Female

DRUGS (2)
  1. LUCENTIS [Suspect]
     Indication: MACULAR DEGENERATION
     Dosage: 0.05 ML, UNKNOWN
     Route: 031
     Dates: start: 20090401
  2. LUCENTIS [Suspect]
     Dosage: UNK
     Route: 065
     Dates: start: 20091021

REACTIONS (1)
  - RETINAL HAEMORRHAGE [None]
